FAERS Safety Report 8271355-5 (Version None)
Quarter: 2012Q2

REPORT INFORMATION
  Report Type: 
  Country: None (occurrence: None)
  Receive Date: 20120410
  Receipt Date: 20120118
  Transmission Date: 20120825
  Serious: No
  Sender: FDA-Public Use
  Company Number: US-NOVEN-12US003946

PATIENT
  Sex: Female
  Weight: 54.422 kg

DRUGS (4)
  1. OXYCODONE HCL [Concomitant]
     Indication: BURSITIS
     Dosage: 15 MG, TID
  2. FENTANYL CITRATE [Suspect]
     Indication: MUSCULOSKELETAL PAIN
  3. OXYCODONE HCL [Concomitant]
     Indication: MUSCULOSKELETAL PAIN
  4. FENTANYL CITRATE [Suspect]
     Indication: BURSITIS
     Dosage: 50 MCG/HR
     Route: 062

REACTIONS (2)
  - APPLICATION SITE EROSION [None]
  - PRODUCT QUALITY ISSUE [None]
